FAERS Safety Report 7845168-X (Version None)
Quarter: 2011Q4

REPORT INFORMATION
  Report Type: 
  Country: None (occurrence: None)
  Receive Date: 20111025
  Receipt Date: 20111019
  Transmission Date: 20120403
  Serious: Yes (Other)
  Sender: FDA-Public Use
  Company Number: CHPA2011US14474

PATIENT
  Age: 80 Year
  Sex: Female

DRUGS (2)
  1. VOLTAREN [Suspect]
     Indication: OSTEOARTHRITIS
     Dosage: UNK, UNK
     Route: 061
  2. VOLTAREN [Suspect]
     Indication: ARTHRALGIA
     Dosage: 4 G, ONCE/SINGLE
     Route: 061
     Dates: start: 20111019

REACTIONS (2)
  - OFF LABEL USE [None]
  - KNEE ARTHROPLASTY [None]
